FAERS Safety Report 17406249 (Version 1)
Quarter: 2020Q1

REPORT INFORMATION
  Report Type: Spontaneous
  Country: US (occurrence: US)
  Receive Date: 20200128
  Receipt Date: 20200128
  Transmission Date: 20200409
  Serious: Yes (Death)
  Sender: FDA-Public Use
  Company Number: None

PATIENT
  Age: 84 Year
  Sex: Male

DRUGS (9)
  1. STIOLTO RESPIMAT [Concomitant]
     Active Substance: OLODATEROL HYDROCHLORIDE\TIOTROPIUM BROMIDE MONOHYDRATE
  2. SIMASTATIN [Concomitant]
  3. LOSARTAN POT [Concomitant]
     Active Substance: LOSARTAN POTASSIUM
  4. ASPIRIN. [Concomitant]
     Active Substance: ASPIRIN
  5. PROAIR HFA AER [Concomitant]
  6. ESBRIET [Suspect]
     Active Substance: PIRFENIDONE
     Indication: INTERSTITIAL LUNG DISEASE
     Route: 048
     Dates: start: 20170713
  7. CARVEDILOL. [Concomitant]
     Active Substance: CARVEDILOL
  8. CLOBETASSOL [Concomitant]
  9. ALAVERT ALLERGY [Concomitant]
     Active Substance: LORATADINE

REACTIONS (1)
  - Death [None]

NARRATIVE: CASE EVENT DATE: 20200104
